FAERS Safety Report 25971562 (Version 1)
Quarter: 2025Q4

REPORT INFORMATION
  Report Type: Report from Study
  Country: US (occurrence: US)
  Receive Date: 20251029
  Receipt Date: 20251029
  Transmission Date: 20260118
  Serious: Yes (Death)
  Sender: ABBVIE
  Company Number: US-ABBVIE-6522237

PATIENT
  Age: 99 Year
  Sex: Female

DRUGS (1)
  1. SYNTHROID [Suspect]
     Active Substance: LEVOTHYROXINE SODIUM
     Indication: Product used for unknown indication
     Route: 050
     Dates: start: 20231115

REACTIONS (2)
  - Death [Fatal]
  - Dysphagia [Unknown]

NARRATIVE: CASE EVENT DATE: 20250901
